FAERS Safety Report 13316710 (Version 2)
Quarter: 2017Q2

REPORT INFORMATION
  Report Type: Spontaneous
  Country: US (occurrence: US)
  Receive Date: 20170310
  Receipt Date: 20170523
  Transmission Date: 20170830
  Serious: Yes (Other)
  Sender: FDA-Public Use
  Company Number: US-TEVA-746168ACC

PATIENT
  Age: 32 Year
  Sex: Female
  Weight: 99.88 kg

DRUGS (2)
  1. PARAGARD T 380A [Suspect]
     Active Substance: COPPER
     Indication: CONTRACEPTION
     Dates: start: 20151111, end: 20170301
  2. LEVOXYL [Concomitant]
     Active Substance: LEVOTHYROXINE SODIUM

REACTIONS (3)
  - Embedded device [Recovered/Resolved]
  - Device dislocation [Recovered/Resolved]
  - Pelvic pain [Unknown]

NARRATIVE: CASE EVENT DATE: 20170301
